FAERS Safety Report 17803701 (Version 2)
Quarter: 2020Q2

REPORT INFORMATION
  Report Type: Spontaneous
  Country: US (occurrence: US)
  Receive Date: 20200519
  Receipt Date: 20200603
  Transmission Date: 20200714
  Serious: No
  Sender: FDA-Public Use
  Company Number: US-TEVA-2020-US-1237623

PATIENT
  Age: 44 Year
  Sex: Female

DRUGS (1)
  1. BUPRENORPHINE TRANSDERMAL SYSTEM [Suspect]
     Active Substance: BUPRENORPHINE
     Route: 062
     Dates: start: 2020

REACTIONS (4)
  - Skin pressure mark [Unknown]
  - Therapeutic product effect variable [Unknown]
  - Product adhesion issue [Unknown]
  - Product substitution issue [Unknown]
